FAERS Safety Report 20194654 (Version 1)
Quarter: 2021Q4

REPORT INFORMATION
  Report Type: Spontaneous
  Country: HU (occurrence: HU)
  Receive Date: 20211216
  Receipt Date: 20211216
  Transmission Date: 20220304
  Serious: Yes (Other)
  Sender: FDA-Public Use
  Company Number: None

PATIENT
  Age: 58 Year
  Sex: Female
  Weight: 72 kg

DRUGS (13)
  1. PACLITAXEL [Suspect]
     Active Substance: PACLITAXEL
     Indication: Breast cancer metastatic
     Route: 042
     Dates: start: 20211115, end: 20211115
  2. NETUPITANT\PALONOSETRON HYDROCHLORIDE [Suspect]
     Active Substance: NETUPITANT\PALONOSETRON HYDROCHLORIDE
     Indication: Premedication
     Dosage: 1 DF = 300 MG NETUPITANT + 0.5 MG PALONOSETRON HYDROCHLORIDE
     Route: 048
     Dates: start: 20211115, end: 20211115
  3. CARBOPLATIN [Suspect]
     Active Substance: CARBOPLATIN
     Indication: Breast cancer metastatic
     Route: 042
     Dates: start: 20211115, end: 20211115
  4. BEVACIZUMAB [Suspect]
     Active Substance: BEVACIZUMAB
     Indication: Breast cancer metastatic
     Route: 042
     Dates: start: 20211115, end: 20211115
  5. ONDANSETRON HYDROCHLORIDE [Suspect]
     Active Substance: ONDANSETRON HYDROCHLORIDE
     Indication: Premedication
     Route: 042
     Dates: start: 20211115, end: 20211115
  6. METHYLPREDNISOLONE SODIUM SUCCINATE [Suspect]
     Active Substance: METHYLPREDNISOLONE SODIUM SUCCINATE
     Indication: Premedication
     Route: 042
     Dates: start: 20211115, end: 20211115
  7. FAMOTIDINE [Suspect]
     Active Substance: FAMOTIDINE
     Indication: Premedication
     Route: 042
     Dates: start: 20211115, end: 20211115
  8. HYDROCHLOROTHIAZIDE\TELMISARTAN [Concomitant]
     Active Substance: HYDROCHLOROTHIAZIDE\TELMISARTAN
     Indication: Hypertension
     Route: 048
  9. FAMOTIDINE [Concomitant]
     Active Substance: FAMOTIDINE
     Indication: Prophylaxis against gastrointestinal ulcer
     Route: 048
  10. FAMOTIDINE [Concomitant]
     Active Substance: FAMOTIDINE
     Indication: Premedication
     Dates: start: 20211115, end: 20211115
  11. PEGFILGRASTIM [Concomitant]
     Active Substance: PEGFILGRASTIM
     Indication: Neutropenia
     Route: 058
     Dates: start: 20211115, end: 20211115
  12. CARVEDILOL [Concomitant]
     Active Substance: CARVEDILOL
     Indication: Arrhythmia
     Route: 048
  13. LEVOTHYROXINE SODIUM [Concomitant]
     Active Substance: LEVOTHYROXINE SODIUM
     Indication: Thyroid disorder
     Route: 048

REACTIONS (10)
  - Blood glucose increased [Unknown]
  - Nasal congestion [Recovering/Resolving]
  - Paraesthesia [Recovering/Resolving]
  - Feeling hot [Recovering/Resolving]
  - Malaise [Recovering/Resolving]
  - Vomiting [Unknown]
  - Nausea [Unknown]
  - Flushing [Recovering/Resolving]
  - Dizziness [Recovering/Resolving]
  - Dyspnoea [Recovering/Resolving]

NARRATIVE: CASE EVENT DATE: 20211115
